FAERS Safety Report 19106101 (Version 1)
Quarter: 2021Q2

REPORT INFORMATION
  Report Type: Spontaneous
  Country: US (occurrence: US)
  Receive Date: 20210407
  Receipt Date: 20210407
  Transmission Date: 20210717
  Serious: Yes (Other)
  Sender: FDA-Public Use
  Company Number: US-SA-2021SA114197

PATIENT
  Age: 18 Year
  Sex: Female

DRUGS (3)
  1. TAMSULOSIN HYDROCHLORIDE. [Suspect]
     Active Substance: TAMSULOSIN HYDROCHLORIDE
     Route: 065
  2. MORNIFLUMATE [Suspect]
     Active Substance: MORNIFLUMATE
     Route: 065
  3. ORILISSA [Suspect]
     Active Substance: ELAGOLIX SODIUM
     Route: 048

REACTIONS (4)
  - Urinary tract disorder [Unknown]
  - Dysmenorrhoea [Not Recovered/Not Resolved]
  - Menstruation irregular [Not Recovered/Not Resolved]
  - Loss of consciousness [Unknown]

NARRATIVE: CASE EVENT DATE: 202102
